FAERS Safety Report 4817031-X (Version None)
Quarter: 2005Q4

REPORT INFORMATION
  Report Type: 
  Country: None (occurrence: None)
  Receive Date: 20051101
  Receipt Date: 20051025
  Transmission Date: 20060501
  Serious: Yes (Other)
  Sender: FDA-Public Use
  Company Number: GB-GLAXOSMITHKLINE-B0398398A

PATIENT
  Age: 31 Year
  Sex: Male

DRUGS (3)
  1. MALARONE [Suspect]
     Indication: MALARIA PROPHYLAXIS
     Route: 048
     Dates: start: 20050910, end: 20051004
  2. VOLTAROL [Concomitant]
     Indication: BACK PAIN
     Route: 048
  3. YELLOW FEVER [Concomitant]
     Route: 065
     Dates: start: 20050825, end: 20050825

REACTIONS (2)
  - HERPES SIMPLEX [None]
  - MOUTH ULCERATION [None]
